FAERS Safety Report 9336708 (Version 1)
Quarter: 2013Q2

REPORT INFORMATION
  Report Type: Spontaneous
  Country: CA (occurrence: CA)
  Receive Date: 20130607
  Receipt Date: 20130607
  Transmission Date: 20140414
  Serious: Yes (Death, Other)
  Sender: FDA-Public Use
  Company Number: PHHY2013CA057559

PATIENT
  Age: 66 Year
  Sex: Male

DRUGS (5)
  1. SIMULECT [Suspect]
     Dosage: UNK
  2. MYCOPHENOLATE MOFETIL [Suspect]
  3. PREDNISONE [Suspect]
  4. TACROLIMUS [Suspect]
  5. BACTRIM [Concomitant]

REACTIONS (5)
  - Multi-organ failure [Fatal]
  - Respiratory failure [Fatal]
  - Lung transplant rejection [Fatal]
  - Cytomegalovirus viraemia [Fatal]
  - Pneumocystis jirovecii pneumonia [Fatal]
